FAERS Safety Report 8906134 (Version 3)
Quarter: 2013Q3

REPORT INFORMATION
  Report Type: Spontaneous
  Country: DE (occurrence: DE)
  Receive Date: 20121110
  Receipt Date: 20130709
  Transmission Date: 20140515
  Serious: Yes (Other)
  Sender: FDA-Public Use
  Company Number: DE-MERCK-1211DEU002704

PATIENT
  Age: 42 Year
  Sex: Male

DRUGS (3)
  1. SYCREST [Suspect]
     Dosage: 5 MG, QD
     Route: 048
     Dates: start: 20120712, end: 20120712
  2. SYCREST [Suspect]
     Dosage: 10 MG, QD
     Route: 048
     Dates: start: 20120713, end: 20120715
  3. FLUANXOL DEPOT [Concomitant]
     Dosage: 20 MG, EVERY 14 DAYS
     Route: 030
     Dates: start: 2010

REACTIONS (1)
  - Nightmare [Recovered/Resolved]
